FAERS Safety Report 8838087 (Version 2)
Quarter: 2012Q4

REPORT INFORMATION
  Report Type: 
  Country: FI (occurrence: FI)
  Receive Date: 20121012
  Receipt Date: 20121022
  Transmission Date: 20130627
  Serious: Yes (Death, Other)
  Sender: FDA-Public Use
  Company Number: FI-ROCHE-1143281

PATIENT
  Age: 73 Year
  Sex: Male

DRUGS (3)
  1. ALTEPLASE [Suspect]
     Indication: ISCHAEMIC STROKE
     Dosage: 10% given as a bolus and the remaining 90% as a continuous infusion for 1 h
     Route: 042
     Dates: start: 20071015, end: 20071015
  2. ASASANTIN [Suspect]
     Indication: PRODUCT USED FOR UNKNOWN INDICATION
     Route: 065
  3. ANGIOTENSIN II RECEPTOR ANTAGONISTS [Concomitant]
     Route: 065

REACTIONS (4)
  - Death [Fatal]
  - Cerebral haemorrhage [Unknown]
  - Cerebral haemorrhage [Unknown]
  - Brain oedema [Unknown]
